FAERS Safety Report 4313569-2 (Version None)
Quarter: 2004Q1

REPORT INFORMATION
  Report Type: 
  Country: None (occurrence: None)
  Receive Date: 20040304
  Receipt Date: 20040225
  Transmission Date: 20041129
  Serious: Yes (Hospitalization, Other)
  Sender: FDA-Public Use
  Company Number: USA-2003-0006446

PATIENT
  Age: 43 Year
  Sex: Female

DRUGS (16)
  1. OXYCONTIN [Suspect]
     Indication: PAIN
     Dosage: 20 MG, SEE TEXT
     Dates: start: 19981105, end: 20011214
  2. PHENERGAN [Concomitant]
  3. NICOTINE [Concomitant]
  4. ATIVAN [Concomitant]
  5. PRILOSEC [Concomitant]
  6. ESTRADERM [Concomitant]
  7. SANDOSTATIN [Concomitant]
  8. BENADRYL [Concomitant]
  9. CREON [Concomitant]
  10. BENTYL [Concomitant]
  11. PEPCID [Concomitant]
  12. MULTIVITAMINS (THIAMINE HYDROCHLORIDE, RIBOFLAVIN, RETINOL, PANTHENOL, [Concomitant]
  13. AMBIEN [Concomitant]
  14. COLACE CAPSULES 100 MG (DOCUSATE SODIUM) CAPSULE [Concomitant]
  15. VALIUM [Concomitant]
  16. ROXICODONE [Concomitant]

REACTIONS (9)
  - BACTERIAL INFECTION [None]
  - CATHETER SEPSIS [None]
  - DEPRESSION [None]
  - DRUG DEPENDENCE [None]
  - DRUG WITHDRAWAL SYNDROME [None]
  - INSOMNIA [None]
  - PANCREATITIS CHRONIC [None]
  - PYREXIA [None]
  - WEIGHT DECREASED [None]
